FAERS Safety Report 17070350 (Version 1)
Quarter: 2019Q4

REPORT INFORMATION
  Report Type: Spontaneous
  Country: IR (occurrence: IR)
  Receive Date: 20191125
  Receipt Date: 20191125
  Transmission Date: 20200122
  Serious: Yes (Death, Other)
  Sender: FDA-Public Use
  Company Number: IR-SAKK-2019SA323038AA

PATIENT
  Weight: 16 kg

DRUGS (2)
  1. DIPHENHYDRAMINE. [Concomitant]
     Active Substance: DIPHENHYDRAMINE
     Indication: INFLUENZA
     Dosage: 3 ML, TID
     Route: 048
  2. MYOZYME [Suspect]
     Active Substance: ALGLUCOSIDASE ALFA
     Indication: GLYCOGEN STORAGE DISEASE TYPE II
     Dosage: 5 U, QOW
     Dates: start: 20191009, end: 20191119

REACTIONS (2)
  - Seizure [Fatal]
  - Pyrexia [Fatal]

NARRATIVE: CASE EVENT DATE: 20191118
